FAERS Safety Report 7860073-0 (Version None)
Quarter: 2011Q4

REPORT INFORMATION
  Report Type: 
  Country: None (occurrence: None)
  Receive Date: 20111025
  Receipt Date: 20111018
  Transmission Date: 20120403
  Serious: Yes (Other)
  Sender: FDA-Public Use
  Company Number: A0949493A

PATIENT
  Age: 46 Year
  Sex: Male

DRUGS (1)
  1. CAMPHOR + MENTHOL LOTION (CAMPHOR + MENTHOL) (SARNA) [Suspect]
     Indication: PRODUCT USED FOR UNKNOWN INDICATION
     Dosage: TOPICAL
     Route: 061

REACTIONS (5)
  - PURULENCE [None]
  - SWELLING [None]
  - INFECTED NAEVUS [None]
  - PAIN [None]
  - MELANOCYTIC NAEVUS [None]
